FAERS Safety Report 6802931-1 (Version None)
Quarter: 2010Q2

REPORT INFORMATION
  Report Type: 
  Country: None (occurrence: None)
  Receive Date: 20100628
  Receipt Date: 20100617
  Transmission Date: 20101027
  Serious: Yes (Hospitalization)
  Sender: FDA-Public Use
  Company Number: US-ASTRAZENECA-2010SE28359

PATIENT
  Sex: Male

DRUGS (2)
  1. CRESTOR [Suspect]
     Indication: BLOOD CHOLESTEROL INCREASED
     Route: 048
     Dates: start: 20100517, end: 20100610
  2. ZESTRIL [Concomitant]
     Dosage: DAILY
     Route: 048
     Dates: start: 20000101, end: 20100610

REACTIONS (1)
  - FACE OEDEMA [None]
